FAERS Safety Report 6916062-3 (Version None)
Quarter: 2010Q3

REPORT INFORMATION
  Report Type: 
  Country: None (occurrence: None)
  Receive Date: 20100810
  Receipt Date: 20100802
  Transmission Date: 20110219
  Serious: No
  Sender: FDA-Public Use
  Company Number: US-BIOGENIDEC-2010BI009373

PATIENT
  Age: 37 Year
  Sex: Female

DRUGS (2)
  1. TYSABRI [Suspect]
     Indication: MULTIPLE SCLEROSIS
     Route: 042
     Dates: start: 20090330
  2. AVONEX [Concomitant]
     Indication: MULTIPLE SCLEROSIS
     Route: 030
     Dates: start: 20050318

REACTIONS (9)
  - ARTHRALGIA [None]
  - BURNING SENSATION [None]
  - BURSITIS [None]
  - DYSARTHRIA [None]
  - HEADACHE [None]
  - MALAISE [None]
  - MEMORY IMPAIRMENT [None]
  - SOMNOLENCE [None]
  - WEIGHT DECREASED [None]
